FAERS Safety Report 12546875 (Version 3)
Quarter: 2016Q4

REPORT INFORMATION
  Report Type: Spontaneous
  Country: US (occurrence: US)
  Receive Date: 20160711
  Receipt Date: 20161019
  Transmission Date: 20170207
  Serious: Yes (Other)
  Sender: FDA-Public Use
  Company Number: US-TEVA-675481USA

PATIENT
  Age: 55 Year
  Sex: Female

DRUGS (1)
  1. ZECUITY [Suspect]
     Active Substance: SUMATRIPTAN SUCCINATE
     Route: 062

REACTIONS (6)
  - Application site scar [Unknown]
  - Product adhesion issue [Unknown]
  - Application site pruritus [Recovered/Resolved]
  - Application site rash [Recovered/Resolved]
  - Drug ineffective [Unknown]
  - Incorrect drug administration duration [Unknown]

NARRATIVE: CASE EVENT DATE: 20160316
